FAERS Safety Report 9148068 (Version 2)
Quarter: 2013Q2

REPORT INFORMATION
  Report Type: Spontaneous
  Country: US (occurrence: US)
  Receive Date: 20130308
  Receipt Date: 20130422
  Transmission Date: 20140414
  Serious: No
  Sender: FDA-Public Use
  Company Number: US-009507513-1302USA009803

PATIENT
  Sex: Female

DRUGS (3)
  1. VICTRELIS [Suspect]
     Indication: CHRONIC HEPATITIS C
     Dosage: 800 MG, TID (80 MG EVERY 8 HOURS)
     Route: 048
     Dates: start: 20130214
  2. PEGASYS [Concomitant]
  3. RIBASPHERE [Concomitant]

REACTIONS (2)
  - White blood cell count decreased [Unknown]
  - Dizziness [Unknown]
